FAERS Safety Report 23338431 (Version 1)
Quarter: 2023Q4

REPORT INFORMATION
  Report Type: Spontaneous
  Country: US (occurrence: US)
  Receive Date: 20231226
  Receipt Date: 20231226
  Transmission Date: 20240110
  Serious: Yes (Other)
  Sender: FDA-Public Use
  Company Number: US-TAKEDA-2023TUS123432

PATIENT
  Age: 25 Year
  Sex: Male

DRUGS (1)
  1. TRINTELLIX [Suspect]
     Active Substance: VORTIOXETINE HYDROBROMIDE
     Indication: Major depression
     Dosage: UNK
     Route: 065

REACTIONS (6)
  - Suicidal ideation [Unknown]
  - Anhedonia [Unknown]
  - Insomnia [Unknown]
  - Feelings of worthlessness [Unknown]
  - Feeling guilty [Unknown]
  - Restlessness [Unknown]
